FAERS Safety Report 16354660 (Version 1)
Quarter: 2019Q2

REPORT INFORMATION
  Report Type: Other
  Country: NL (occurrence: NL)
  Receive Date: 20190524
  Receipt Date: 20190524
  Transmission Date: 20190711
  Serious: Yes (Other)
  Sender: FDA-Public Use
  Company Number: NL-LEXICON PHARMACEUTICALS, INC-19-1606-00586

PATIENT
  Sex: Female

DRUGS (2)
  1. SANDOSTATIN LAR DEPOT [Concomitant]
     Active Substance: OCTREOTIDE ACETATE
     Dosage: 30 MG/2 ML
     Route: 065
  2. TELOTRISTAT ETHYL [Suspect]
     Active Substance: TELOTRISTAT ETHYL
     Indication: PRODUCT USED FOR UNKNOWN INDICATION
     Route: 048

REACTIONS (2)
  - Hospice care [Not Recovered/Not Resolved]
  - Terminal state [Not Recovered/Not Resolved]
